FAERS Safety Report 6243995-6 (Version None)
Quarter: 2009Q2

REPORT INFORMATION
  Report Type: 
  Country: None (occurrence: None)
  Receive Date: 20090623
  Receipt Date: 20090611
  Transmission Date: 20091009
  Serious: Yes (Other)
  Sender: FDA-Public Use
  Company Number: 2009-02408

PATIENT

DRUGS (1)
  1. VELCADE [Suspect]
     Indication: MULTIPLE MYELOMA

REACTIONS (5)
  - CARDIOTOXICITY [None]
  - CEREBROVASCULAR ACCIDENT [None]
  - DIARRHOEA [None]
  - PNEUMONIA [None]
  - SEPSIS [None]
